FAERS Safety Report 18111133 (Version 2)
Quarter: 2020Q3

REPORT INFORMATION
  Report Type: Report from Study
  Country: CA (occurrence: CA)
  Receive Date: 20200804
  Receipt Date: 20200805
  Transmission Date: 20201103
  Serious: Yes (Other)
  Sender: FDA-Public Use
  Company Number: CA-JNJFOC-20200101937

PATIENT
  Age: 12 Year
  Sex: Male
  Weight: 56.8 kg

DRUGS (3)
  1. REMICADE [Suspect]
     Active Substance: INFLIXIMAB
     Dosage: ON 28?JUL?2020, THE PATIENT RECEIVED 7TH INFUSION OF REMICADE AND PARTIAL HARVEY?BRADSHAW COMPLETED
     Route: 042
     Dates: start: 20191119
  2. REMICADE [Suspect]
     Active Substance: INFLIXIMAB
     Indication: CROHN^S DISEASE
     Dosage: 300 MG
     Route: 042
     Dates: start: 20190827
  3. REMICADE [Suspect]
     Active Substance: INFLIXIMAB
     Dosage: ON 21?MAR?2020, THE PATIENT RECEIVED 4TH 300 MG INFLIXIMAB INFUSION
     Route: 042
     Dates: start: 20191119

REACTIONS (4)
  - Crohn^s disease [Not Recovered/Not Resolved]
  - Off label use [Unknown]
  - Incorrect drug administration rate [Unknown]
  - Product use issue [Unknown]

NARRATIVE: CASE EVENT DATE: 20190827
